FAERS Safety Report 18314138 (Version 3)
Quarter: 2020Q4

REPORT INFORMATION
  Report Type: Report from Study
  Country: US (occurrence: US)
  Receive Date: 20200925
  Receipt Date: 20201110
  Transmission Date: 20210113
  Serious: Yes (Death, Hospitalization, Other)
  Sender: FDA-Public Use
  Company Number: US-JNJFOC-A-NJ2020-208347

PATIENT
  Age: 58 Year
  Sex: Female
  Weight: 70.3 kg

DRUGS (4)
  1. SILDENAFIL CITRATE. [Concomitant]
     Active Substance: SILDENAFIL CITRATE
  2. REMODULIN [Suspect]
     Active Substance: TREPROSTINIL
     Indication: PRODUCT USED FOR UNKNOWN INDICATION
     Route: 065
  3. VELETRI [Suspect]
     Active Substance: EPOPROSTENOL
     Indication: PRODUCT USED FOR UNKNOWN INDICATION
  4. UPTRAVI [Suspect]
     Active Substance: SELEXIPAG
     Indication: PULMONARY ARTERIAL HYPERTENSION
     Dosage: 200 MCG, BID
     Route: 048
     Dates: start: 20200709, end: 20200807

REACTIONS (22)
  - Product dose omission issue [Recovered/Resolved]
  - Musculoskeletal chest pain [Unknown]
  - Respiratory failure [Fatal]
  - Feeling abnormal [Unknown]
  - Cough [Unknown]
  - Decreased appetite [Unknown]
  - Skin discolouration [Recovering/Resolving]
  - Dyspnoea [Unknown]
  - Headache [Unknown]
  - Insomnia [Unknown]
  - Pulmonary hypertension [Unknown]
  - Muscle tightness [Unknown]
  - Pain in jaw [Unknown]
  - Cardiomegaly [Unknown]
  - Pain [Unknown]
  - Drug intolerance [Unknown]
  - Cyanosis [Unknown]
  - Confusional state [Unknown]
  - Arthropod bite [Unknown]
  - Toothache [Unknown]
  - Musculoskeletal pain [Unknown]
  - Asthenia [Unknown]

NARRATIVE: CASE EVENT DATE: 20200913
